FAERS Safety Report 9018293 (Version 3)
Quarter: 2013Q1

REPORT INFORMATION
  Report Type: Spontaneous
  Country: US (occurrence: US)
  Receive Date: 20130117
  Receipt Date: 20130125
  Transmission Date: 20140127
  Serious: Yes (Death, Other)
  Sender: FDA-Public Use
  Company Number: US-BAXTER-2013BAX001603

PATIENT
  Age: 61 Year
  Sex: Male

DRUGS (7)
  1. DIANEAL LOW CALCIUM [Suspect]
     Indication: PERITONEAL DIALYSIS
     Route: 033
     Dates: end: 20130107
  2. DIANEAL LOW CALCIUM [Suspect]
     Indication: PERITONEAL DIALYSIS
     Route: 033
     Dates: end: 20130107
  3. DIANEAL LOW CALCIUM (ULTRABAG) [Suspect]
     Indication: PERITONEAL DIALYSIS
     Route: 033
     Dates: start: 20130104, end: 20130107
  4. DIANEAL LOW CALCIUM (ULTRABAG) [Suspect]
     Indication: PERITONEAL DIALYSIS
     Route: 033
     Dates: start: 20130104, end: 20130107
  5. DIANEAL LOW CALCIUM (ULTRABAG) [Suspect]
     Dates: end: 20130107
  6. DIANEAL LOW CALCIUM (ULTRABAG) [Suspect]
     Dates: end: 20130107
  7. DIANEAL LOW CALCIUM (ULTRABAG) [Suspect]
     Dates: end: 20130107

REACTIONS (2)
  - Myocardial infarction [Fatal]
  - Fatigue [Unknown]
